FAERS Safety Report 9363600 (Version 1)
Quarter: 2013Q2

REPORT INFORMATION
  Report Type: Spontaneous
  Country: IT (occurrence: IT)
  Receive Date: 20130624
  Receipt Date: 20130624
  Transmission Date: 20140414
  Serious: Yes (Other)
  Sender: FDA-Public Use
  Company Number: IT-MYLANLABS-2013S1012819

PATIENT
  Age: 78 Year
  Sex: Male

DRUGS (1)
  1. PANTOPRAZOLE [Suspect]
     Indication: ABDOMINAL PAIN UPPER
     Route: 048
     Dates: start: 20130427, end: 20130427

REACTIONS (3)
  - Lip oedema [Recovering/Resolving]
  - Oral discomfort [Recovering/Resolving]
  - Tongue oedema [Recovering/Resolving]
